FAERS Safety Report 7472757-7 (Version None)
Quarter: 2011Q1

REPORT INFORMATION
  Report Type: 
  Country: None (occurrence: None)
  Receive Date: 20110302
  Receipt Date: 20101214
  Transmission Date: 20110831
  Serious: Yes (Death, Other)
  Sender: FDA-Public Use
  Company Number: 163-21880-10121997

PATIENT
  Age: 75 Year
  Sex: Male

DRUGS (9)
  1. REVLIMID [Suspect]
     Indication: MYELODYSPLASTIC SYNDROME
     Dosage: 5 MG, QOD 21D/28D, PO
     Route: 048
     Dates: start: 20090601, end: 20100101
  2. NITROGLYCERIN SL (GLYCERYL TRINITRATE) [Concomitant]
  3. METOPROLOL TARTRATE [Concomitant]
  4. RENAGEL [Concomitant]
  5. OMEPRAZOLE [Concomitant]
  6. ISORDIL [Concomitant]
  7. ZOCOR [Concomitant]
  8. DEXAMETHASONE [Concomitant]
  9. VICODIN [Concomitant]

REACTIONS (2)
  - ACUTE MYOCARDIAL INFARCTION [None]
  - MULTIPLE MYELOMA [None]
